FAERS Safety Report 10518380 (Version 2)
Quarter: 2014Q4

REPORT INFORMATION
  Report Type: Spontaneous
  Country: GB (occurrence: GB)
  Receive Date: 20141015
  Receipt Date: 20141212
  Transmission Date: 20150528
  Serious: Yes (Other)
  Sender: FDA-Public Use
  Company Number: GB-ELI_LILLY_AND_COMPANY-GB201410001547

PATIENT
  Sex: Male
  Weight: 54.42 kg

DRUGS (8)
  1. ISMO [Concomitant]
     Active Substance: ISOSORBIDE MONONITRATE
  2. HUMULIN 70/30 [Suspect]
     Active Substance: INSULIN HUMAN
     Indication: TYPE 2 DIABETES MELLITUS
     Dosage: 50 U, BID
     Route: 058
     Dates: start: 2011
  3. AMIODARONE [Concomitant]
     Active Substance: AMIODARONE
  4. ATORVASTATIN [Concomitant]
     Active Substance: ATORVASTATIN
  5. DONEPEZIL [Concomitant]
     Active Substance: DONEPEZIL
  6. MEMANTINE [Concomitant]
     Active Substance: MEMANTINE
  7. WARFARIN [Concomitant]
     Active Substance: WARFARIN
  8. BISOPROLOL [Concomitant]
     Active Substance: BISOPROLOL

REACTIONS (2)
  - Incorrect dose administered [Recovering/Resolving]
  - Dementia [Recovering/Resolving]
